FAERS Safety Report 23532208 (Version 1)
Quarter: 2024Q1

REPORT INFORMATION
  Report Type: Spontaneous
  Country: US (occurrence: US)
  Receive Date: 20240216
  Receipt Date: 20240216
  Transmission Date: 20240409
  Serious: Yes (Disabling)
  Sender: FDA-Public Use
  Company Number: US-SA-SAC20240215001693

PATIENT
  Sex: Female
  Weight: 63.5 kg

DRUGS (1)
  1. KEVZARA [Suspect]
     Active Substance: SARILUMAB
     Indication: Polymyalgia rheumatica
     Dosage: 200 MG, QOW
     Route: 058
     Dates: start: 202311

REACTIONS (7)
  - Loss of personal independence in daily activities [Unknown]
  - Pain [Unknown]
  - Injection site swelling [Unknown]
  - Injection site rash [Recovered/Resolved]
  - Blood cholesterol increased [Unknown]
  - Injection site pruritus [Unknown]
  - Injection site erythema [Unknown]
